FAERS Safety Report 5007412-6 (Version None)
Quarter: 2006Q2

REPORT INFORMATION
  Report Type: 
  Country: None (occurrence: None)
  Receive Date: 20060518
  Receipt Date: 20060518
  Transmission Date: 20061013
  Serious: Yes (Hospitalization)
  Sender: FDA-Public Use
  Company Number: None

PATIENT
  Sex: Male

DRUGS (11)
  1. WARFARIN SODIUM [Suspect]
     Indication: MITRAL VALVE REPAIR
     Dosage: 5 MG DAILY PO
     Route: 048
     Dates: start: 20051123, end: 20060316
  2. CLINDAMYCIN TOPICAL [Concomitant]
  3. CYCLOBENZAPRINE HCL [Concomitant]
  4. MINOCYCLINE HCL [Concomitant]
  5. OMEPRAZOLE [Concomitant]
  6. TRETINOIN CREAM [Concomitant]
  7. APAP TAB [Concomitant]
  8. ASPIRIN [Concomitant]
  9. FOLIC ACID [Concomitant]
  10. MULTI-VITAMIN [Concomitant]
  11. ENSURE PLUS [Concomitant]

REACTIONS (1)
  - HAEMORRHAGE INTRACRANIAL [None]
